FAERS Safety Report 4752895-X (Version None)
Quarter: 2005Q3

REPORT INFORMATION
  Report Type: 
  Country: None (occurrence: None)
  Receive Date: 20050714
  Receipt Date: 20050408
  Transmission Date: 20060218
  Serious: Yes (Hospitalization)
  Sender: FDA-Public Use
  Company Number: 200512931US

PATIENT
  Sex: Female

DRUGS (1)
  1. TAXOTERE [Suspect]
     Dosage: 30 MG/M*2 QW

REACTIONS (2)
  - NAUSEA [None]
  - VOMITING [None]
